FAERS Safety Report 5707923-1 (Version None)
Quarter: 2008Q2

REPORT INFORMATION
  Report Type: 
  Country: None (occurrence: None)
  Receive Date: 20080417
  Receipt Date: 20080410
  Transmission Date: 20081010
  Serious: Yes (Other)
  Sender: FDA-Public Use
  Company Number: PHEH2008US02528

PATIENT
  Sex: Female

DRUGS (3)
  1. TOPROL-XL [Suspect]
  2. CELEXA [Concomitant]
  3. DIOVAN [Suspect]
     Dosage: 160 MG, UNK

REACTIONS (4)
  - DEPRESSION [None]
  - FATIGUE [None]
  - FEELING ABNORMAL [None]
  - VISION BLURRED [None]
